FAERS Safety Report 17568126 (Version 1)
Quarter: 2020Q1

REPORT INFORMATION
  Report Type: Spontaneous
  Country: CN (occurrence: CN)
  Receive Date: 20200320
  Receipt Date: 20200320
  Transmission Date: 20200409
  Serious: Yes (Other)
  Sender: FDA-Public Use
  Company Number: CN-ASTRAZENECA-2020SE35900

PATIENT
  Age: 46 Year
  Sex: Male

DRUGS (3)
  1. IRESSA [Suspect]
     Active Substance: GEFITINIB
     Indication: NON-SMALL CELL LUNG CANCER
     Route: 048
  2. HIGH ACTIVITY GINSENOSIDES [Concomitant]
  3. CHINESE MEDICINE SOUP [Concomitant]

REACTIONS (1)
  - Non-small cell lung cancer recurrent [Unknown]
